FAERS Safety Report 5548638-2 (Version None)
Quarter: 2007Q4

REPORT INFORMATION
  Report Type: 
  Country: None (occurrence: None)
  Receive Date: 20071206
  Receipt Date: 20071122
  Transmission Date: 20080405
  Serious: Yes (Disabling, Other)
  Sender: FDA-Public Use
  Company Number: 164485ISR

PATIENT
  Age: 32 Year
  Sex: Female

DRUGS (1)
  1. CITALOPRAM HYDROBROMIDE [Suspect]
     Dosage: 40 MG (20 MG, 2 IN 1 D); ORAL
     Route: 048
     Dates: start: 20060725, end: 20070101

REACTIONS (4)
  - BLOOD BILIRUBIN INCREASED [None]
  - MIGRAINE [None]
  - PHOTOPHOBIA [None]
  - VISUAL FIELD DEFECT [None]
